FAERS Safety Report 8552261-5 (Version None)
Quarter: 2012Q3

REPORT INFORMATION
  Report Type: 
  Country: None (occurrence: None)
  Receive Date: 20120731
  Receipt Date: 20120718
  Transmission Date: 20120928
  Serious: Yes (Hospitalization)
  Sender: FDA-Public Use
  Company Number: FR-BRISTOL-MYERS SQUIBB COMPANY-16793978

PATIENT
  Age: 44 Year
  Sex: Male

DRUGS (3)
  1. GLUCOPHAGE [Suspect]
     Indication: TYPE 2 DIABETES MELLITUS
     Dosage: 2550MG
     Route: 048
     Dates: start: 20120607, end: 20120622
  2. DIAMICRON [Suspect]
     Indication: TYPE 2 DIABETES MELLITUS
     Dosage: MODIFIED RELEASE TABLET
     Route: 048
     Dates: start: 20120607, end: 20120622
  3. IVERMECTIN [Suspect]
     Indication: ACARODERMATITIS
     Dosage: FORMULATION:3MG TABS 5.1429 MG 2ND DOSE:10JUN12 3RD DOSE:20JUN12
     Route: 048
     Dates: start: 20120603, end: 20120622

REACTIONS (1)
  - HEPATIC ENZYME INCREASED [None]
